FAERS Safety Report 9601798 (Version 2)
Quarter: 2013Q4

REPORT INFORMATION
  Report Type: Spontaneous
  Country: US (occurrence: US)
  Receive Date: 20131007
  Receipt Date: 20131107
  Transmission Date: 20140711
  Serious: No
  Sender: FDA-Public Use
  Company Number: US-B.I. PHARMACEUTICALS,INC./RIDGEFIELD-2013-BI-30384BP

PATIENT
  Age: 55 Year
  Sex: Female
  Weight: 73 kg

DRUGS (7)
  1. MIRAPEX [Suspect]
     Indication: RESTLESS LEGS SYNDROME
     Dosage: 0.75 MG
     Route: 048
     Dates: start: 2012
  2. HYDROCHLOROTHIAZIDE [Concomitant]
     Indication: HYPERTENSION
     Dosage: 25 MG
     Route: 048
  3. BUTALBITAL/ACETAMINOPHEN/CF [Concomitant]
     Indication: MIGRAINE
     Dosage: STRENGTH: 50 MG / 325 MG
     Route: 048
  4. LORATADINE [Concomitant]
     Indication: HYPERSENSITIVITY
     Dosage: 10 MG
     Route: 048
  5. MAGNESIUM OXIDE [Concomitant]
     Indication: ARTHRITIS
     Dosage: 400 MG
     Route: 048
  6. PROCHLORPERAZINE [Concomitant]
     Indication: DIZZINESS
     Route: 048
  7. POTASSIUM GLUCONATE [Concomitant]
     Dosage: 1 ANZ
     Route: 048

REACTIONS (3)
  - Paraesthesia [Not Recovered/Not Resolved]
  - Pain in extremity [Not Recovered/Not Resolved]
  - Off label use [Not Recovered/Not Resolved]
